FAERS Safety Report 4349437-X (Version None)
Quarter: 2004Q2

REPORT INFORMATION
  Report Type: 
  Country: None (occurrence: None)
  Receive Date: 20040426
  Receipt Date: 20040413
  Transmission Date: 20050107
  Serious: Yes (Hospitalization)
  Sender: FDA-Public Use
  Company Number: K200400544

PATIENT
  Age: 66 Year
  Sex: Male
  Weight: 107 kg

DRUGS (7)
  1. ALTACE [Suspect]
     Indication: ESSENTIAL HYPERTENSION
     Dosage: 1 U, QD, ORAL
     Route: 048
     Dates: end: 20040223
  2. DAONIL (GLIBENCLAMIDE) TABLET, 5MG [Suspect]
     Indication: DIABETES MELLITUS
     Dosage: 5 MG, BID, ORAL
     Route: 048
     Dates: end: 20040223
  3. IXPRIM (TRAMADOL HYDROCHLORIDE/PARACETAMOL) TABLET [Concomitant]
  4. BI-PROFEND (KETOPROFEN) TABLET [Concomitant]
  5. GLUCOPHAGE ^ABIC^ (METFORMIN HYDROCHLORIDE) [Concomitant]
  6. PRAXILENE (NAFTIDROFURYL OXALATE) TABLET [Concomitant]
  7. MYOLASTAN (TETRAZEPAM) [Concomitant]

REACTIONS (6)
  - CONVULSION [None]
  - DRUG INTERACTION [None]
  - FALL [None]
  - HYPOGLYCAEMIA [None]
  - OVERDOSE [None]
  - WEIGHT DECREASED [None]
